FAERS Safety Report 5814134-8 (Version None)
Quarter: 2008Q3

REPORT INFORMATION
  Report Type: 
  Country: None (occurrence: None)
  Receive Date: 20080717
  Receipt Date: 20080717
  Transmission Date: 20090109
  Serious: Yes (Hospitalization, Other)
  Sender: FDA-Public Use
  Company Number: HR-ABBOTT-08P-216-0451195-00

PATIENT
  Sex: Male
  Weight: 75 kg

DRUGS (7)
  1. HUMIRA [Suspect]
     Indication: RHEUMATOID ARTHRITIS
     Dates: start: 20080214, end: 20080410
  2. SULFASALAZINE [Concomitant]
     Indication: DRUG USE FOR UNKNOWN INDICATION
     Route: 048
  3. METHYLPREDNISOLONE [Concomitant]
     Indication: DRUG USE FOR UNKNOWN INDICATION
     Dosage: DURING HOSPITALIZATION
     Route: 048
  4. METHYLPREDNISOLONE [Concomitant]
     Dosage: DURING HOSPITALIZATION
     Route: 048
  5. METHYLPREDNISOLONE [Concomitant]
     Dosage: AFTER HOSPITALIZATION
  6. COLECALCIFEROL [Concomitant]
     Indication: DRUG USE FOR UNKNOWN INDICATION
     Route: 048
  7. CALCIUM CARBONATE [Concomitant]
     Indication: DRUG USE FOR UNKNOWN INDICATION
     Route: 048

REACTIONS (14)
  - COUGH [None]
  - DYSPHAGIA [None]
  - EPSTEIN-BARR VIRUS ANTIBODY POSITIVE [None]
  - FEELING OF BODY TEMPERATURE CHANGE [None]
  - HEADACHE [None]
  - HYPOAESTHESIA [None]
  - LYMPHADENOPATHY [None]
  - MALAISE [None]
  - MENINGITIS [None]
  - OROPHARYNGEAL PAIN [None]
  - PAIN [None]
  - RHINORRHOEA [None]
  - SWELLING [None]
  - VOMITING [None]
